FAERS Safety Report 19182380 (Version 1)
Quarter: 2021Q2

REPORT INFORMATION
  Report Type: Spontaneous
  Country: US (occurrence: US)
  Receive Date: 20210426
  Receipt Date: 20210426
  Transmission Date: 20210717
  Serious: No
  Sender: FDA-Public Use
  Company Number: US-ABBVIE-21K-163-3827589-00

PATIENT
  Age: 53 Year
  Sex: Male
  Weight: 111.23 kg

DRUGS (1)
  1. SKYRIZI [Suspect]
     Active Substance: RISANKIZUMAB-RZAA
     Indication: PSORIASIS
     Route: 058
     Dates: start: 20210312

REACTIONS (4)
  - Irritable bowel syndrome [Recovering/Resolving]
  - Therapeutic response unexpected [Unknown]
  - Pre-existing condition improved [Unknown]
  - Fatigue [Not Recovered/Not Resolved]

NARRATIVE: CASE EVENT DATE: 202103
